FAERS Safety Report 7342692-3 (Version None)
Quarter: 2011Q1

REPORT INFORMATION
  Report Type: 
  Country: None (occurrence: None)
  Receive Date: 20110310
  Receipt Date: 20110303
  Transmission Date: 20110831
  Serious: Yes (Death)
  Sender: FDA-Public Use
  Company Number: JP-PFIZER INC-2011049440

PATIENT
  Age: 90 Year
  Sex: Male

DRUGS (1)
  1. NOVASTAN [Suspect]
     Route: 041

REACTIONS (1)
  - PULMONARY ALVEOLAR HAEMORRHAGE [None]
